FAERS Safety Report 7201338-5 (Version None)
Quarter: 2010Q4

REPORT INFORMATION
  Report Type: 
  Country: None (occurrence: None)
  Receive Date: 20101229
  Receipt Date: 20101214
  Transmission Date: 20110411
  Serious: Yes (Hospitalization)
  Sender: FDA-Public Use
  Company Number: US-RANBAXY-2010RR-40691

PATIENT

DRUGS (3)
  1. CIPROFLOXACIN [Suspect]
     Indication: PRODUCT USED FOR UNKNOWN INDICATION
     Route: 065
  2. LEVAQUIN [Suspect]
     Indication: PSEUDOMONAS INFECTION
     Dosage: UNK
     Route: 048
     Dates: start: 20041216, end: 20050201
  3. LEVAQUIN [Suspect]
     Dosage: 750 MG, QD
     Dates: start: 20050113

REACTIONS (2)
  - LIGAMENT RUPTURE [None]
  - TENDON RUPTURE [None]
